FAERS Safety Report 4886318-7 (Version None)
Quarter: 2006Q1

REPORT INFORMATION
  Report Type: 
  Country: None (occurrence: None)
  Receive Date: 20060120
  Receipt Date: 20050428
  Transmission Date: 20060701
  Serious: Yes (Hospitalization, Other)
  Sender: FDA-Public Use
  Company Number: US-MERCK-0505USA00248

PATIENT
  Age: 51 Year
  Sex: Female
  Weight: 92 kg

DRUGS (7)
  1. VIOXX [Suspect]
     Indication: PAIN
     Route: 048
     Dates: start: 20010101, end: 20040101
  2. VIOXX [Suspect]
     Route: 048
     Dates: start: 20010101, end: 20040101
  3. LOTENSIN [Concomitant]
     Route: 065
  4. METFORMIN [Concomitant]
     Route: 065
  5. PREMPRO [Concomitant]
     Route: 065
  6. VICODIN [Concomitant]
     Route: 065
  7. SKELAXIN [Concomitant]
     Route: 065

REACTIONS (17)
  - ACUTE CORONARY SYNDROME [None]
  - ANAEMIA [None]
  - ANGINA UNSTABLE [None]
  - ARTHROPATHY [None]
  - CARDIAC DISORDER [None]
  - CHEST PAIN [None]
  - CORONARY ARTERY DISEASE [None]
  - CORONARY ARTERY OCCLUSION [None]
  - DYSLIPIDAEMIA [None]
  - FALL [None]
  - GASTROOESOPHAGEAL REFLUX DISEASE [None]
  - HAEMORRHOIDS [None]
  - HYPERLIPIDAEMIA [None]
  - HYPERTENSION [None]
  - MYOCARDIAL INFARCTION [None]
  - POLYP [None]
  - URINARY TRACT INFECTION [None]
